FAERS Safety Report 4532369-1 (Version None)
Quarter: 2004Q4

REPORT INFORMATION
  Report Type: 
  Country: None (occurrence: None)
  Receive Date: 20041217
  Receipt Date: 20041203
  Transmission Date: 20050328
  Serious: Yes (Other)
  Sender: FDA-Public Use
  Company Number: 2004109688

PATIENT
  Sex: 0

DRUGS (3)
  1. PROVERA [Suspect]
     Indication: HORMONE REPLACEMENT THERAPY
     Dosage: ORAL
     Route: 048
  2. PROVELLA-14(ESTROGENS CONJUGATED, MEDROXYPROGESTERONE ACETATE) [Suspect]
     Indication: HORMONE REPLACEMENT THERAPY
  3. OESTRANORM (ESTRADIOL, NORETHISTERONE) [Suspect]
     Indication: HORMONE REPLACEMENT THERAPY

REACTIONS (1)
  - BREAST CANCER FEMALE [None]
